FAERS Safety Report 20131584 (Version 1)
Quarter: 2021Q4

REPORT INFORMATION
  Report Type: Report from Study
  Country: JP (occurrence: JP)
  Receive Date: 20211130
  Receipt Date: 20211130
  Transmission Date: 20220303
  Serious: Yes (Life-Threatening, Other)
  Sender: FDA-Public Use
  Company Number: JP-PFIZER INC-202101661063

PATIENT
  Age: 65 Year
  Sex: Male

DRUGS (10)
  1. METHOTREXATE SODIUM [Suspect]
     Active Substance: METHOTREXATE SODIUM
     Indication: Mantle cell lymphoma stage IV
     Dosage: HIGH-DOSE, CYCLIC
     Route: 037
  2. METHOTREXATE SODIUM [Suspect]
     Active Substance: METHOTREXATE SODIUM
     Dosage: 3.5 G / M2, CYCLIC
     Route: 037
  3. RITUXIMAB [Suspect]
     Active Substance: RITUXIMAB
     Indication: Mantle cell lymphoma stage IV
     Dosage: TWO COURSES, CYCLIC
  4. CYCLOPHOSPHAMIDE [Suspect]
     Active Substance: CYCLOPHOSPHAMIDE
     Indication: Mantle cell lymphoma stage IV
     Dosage: 40 MG/KG, CYCLIC, DAYS -3 AND -2
  5. VINCRISTINE [Suspect]
     Active Substance: VINCRISTINE
     Indication: Mantle cell lymphoma stage IV
     Dosage: UNK, CYCLIC
  6. DOXORUBICIN [Suspect]
     Active Substance: DOXORUBICIN
     Indication: Mantle cell lymphoma stage IV
     Dosage: UNK, CYCLIC
  7. DEXAMETHASONE [Suspect]
     Active Substance: DEXAMETHASONE
     Indication: Mantle cell lymphoma stage IV
     Dosage: UNK, CYCLIC
  8. CYTARABINE [Suspect]
     Active Substance: CYTARABINE
     Indication: Mantle cell lymphoma stage IV
     Dosage: UNK, CYCLIC
  9. ETOPOSIDE [Suspect]
     Active Substance: ETOPOSIDE
     Indication: Mantle cell lymphoma stage IV
     Dosage: 200 MG/M2, CYCLIC, DAYS -5 AND -4)
  10. BUSULFAN [Suspect]
     Active Substance: BUSULFAN
     Indication: Mantle cell lymphoma stage IV
     Dosage: 3.2 MG/KG, DAILY, DAYS -7, -6, -5, AND -4

REACTIONS (4)
  - Stomatitis [Unknown]
  - Neutropenia [Unknown]
  - Thrombocytopenia [Unknown]
  - Febrile neutropenia [Unknown]
